FAERS Safety Report 10266296 (Version 3)
Quarter: 2014Q3

REPORT INFORMATION
  Report Type: Spontaneous
  Country: US (occurrence: US)
  Receive Date: 20140627
  Receipt Date: 20140922
  Transmission Date: 20150326
  Serious: Yes (Other)
  Sender: FDA-Public Use
  Company Number: US-ASTRAZENECA-2014SE41136

PATIENT
  Sex: Female

DRUGS (1)
  1. PRILOSEC OTC [Suspect]
     Active Substance: OMEPRAZOLE MAGNESIUM
     Route: 048
     Dates: start: 20140606, end: 20140606

REACTIONS (8)
  - Stevens-Johnson syndrome [Recovering/Resolving]
  - Skin burning sensation [Recovering/Resolving]
  - Erythema multiforme [Not Recovered/Not Resolved]
  - Rash pruritic [Unknown]
  - Chapped lips [Recovering/Resolving]
  - Oral mucosal erythema [Recovering/Resolving]
  - Vein disorder [Recovering/Resolving]
  - Lip swelling [Recovering/Resolving]

NARRATIVE: CASE EVENT DATE: 20140606
